FAERS Safety Report 5214936-5 (Version None)
Quarter: 2007Q1

REPORT INFORMATION
  Report Type: 
  Country: None (occurrence: None)
  Receive Date: 20070119
  Receipt Date: 20070119
  Transmission Date: 20070707
  Serious: Yes (Other)
  Sender: FDA-Public Use
  Company Number: None

PATIENT
  Sex: Female
  Weight: 77.1115 kg

DRUGS (1)
  1. PLAVIX [Suspect]
     Dosage: 75 MG DAILY PO
     Route: 048
     Dates: start: 20060907

REACTIONS (2)
  - PRURITUS [None]
  - VASCULITIC RASH [None]
